FAERS Safety Report 8576726-5 (Version None)
Quarter: 2012Q3

REPORT INFORMATION
  Report Type: 
  Country: None (occurrence: None)
  Receive Date: 20120807
  Receipt Date: 20120731
  Transmission Date: 20120928
  Serious: Yes (Hospitalization)
  Sender: FDA-Public Use
  Company Number: IT-GLAXOSMITHKLINE-B0820741A

PATIENT
  Sex: Female

DRUGS (8)
  1. OXYCONTIN [Concomitant]
     Dosage: 30MG PER DAY
     Route: 048
  2. ACYCLOVIR [Concomitant]
     Dosage: 1200MG PER DAY
     Route: 048
  3. LYRICA [Concomitant]
     Dosage: 150MG PER DAY
     Route: 048
  4. LAEVOLAC [Concomitant]
  5. ALKERAN [Suspect]
     Indication: MULTIPLE MYELOMA
     Dosage: 150MG PER DAY
     Route: 042
     Dates: start: 20120117, end: 20120117
  6. ROSUVASTATIN [Concomitant]
     Dosage: 5MG PER DAY
     Route: 048
  7. OMEPRAZOLE [Concomitant]
     Dosage: 40MG PER DAY
     Route: 048
  8. NAVOBAN [Suspect]
     Indication: PROPHYLAXIS
     Dosage: 1ML PER DAY
     Route: 042
     Dates: start: 20120117, end: 20120117

REACTIONS (1)
  - CLONIC CONVULSION [None]
